FAERS Safety Report 16052697 (Version 1)
Quarter: 2019Q1

REPORT INFORMATION
  Report Type: Spontaneous
  Country: JP (occurrence: JP)
  Receive Date: 20190308
  Receipt Date: 20190308
  Transmission Date: 20190418
  Serious: Yes (Other)
  Sender: FDA-Public Use
  Company Number: JP-PFIZER INC-2019097133

PATIENT
  Age: 75 Year
  Sex: Male

DRUGS (14)
  1. CARDENALIN [Concomitant]
     Active Substance: DOXAZOSIN MESYLATE
     Dosage: 2 MG, UNK
  2. MOHRUS [Concomitant]
     Active Substance: KETOPROFEN
     Dosage: 20 MG, UNK
  3. SYMBICORT [Concomitant]
     Active Substance: BUDESONIDE\FORMOTEROL FUMARATE DIHYDRATE
     Dosage: UNK
  4. LYRICA [Suspect]
     Active Substance: PREGABALIN
     Indication: NEURALGIA
     Dosage: 50 MG, 2X/DAY
     Route: 048
     Dates: start: 20180929, end: 20181206
  5. PATANOL [Concomitant]
     Active Substance: OLOPATADINE HYDROCHLORIDE
     Dosage: UNK
  6. URINORM [BENZBROMARONE] [Concomitant]
     Dosage: 25 MG, UNK
  7. RIVOTRIL [Concomitant]
     Active Substance: CLONAZEPAM
     Dosage: 0.5 MG, UNK
     Dates: end: 20181206
  8. HIRUDOID [Concomitant]
     Active Substance: GLYCOSAMINOGLYCANS
  9. BETANIS [Concomitant]
     Active Substance: MIRABEGRON
     Dosage: 50 MG, UNK
  10. NAPAGELN [Concomitant]
     Active Substance: FELBINAC
     Dosage: UNK
  11. POSTERISAN [HYDROCORTISONE] [Concomitant]
     Dosage: UNK
  12. NORVASC [Concomitant]
     Active Substance: AMLODIPINE BESYLATE
     Dosage: 2.5 MG, UNK
  13. URIEF [Concomitant]
     Active Substance: SILODOSIN
     Dosage: 4 MG, UNK
  14. MUCOSTA [Concomitant]
     Active Substance: REBAMIPIDE
     Dosage: 100 MG, UNK

REACTIONS (2)
  - Brain stem infarction [Recovering/Resolving]
  - Diplopia [Recovering/Resolving]

NARRATIVE: CASE EVENT DATE: 20181201
